FAERS Safety Report 13727961 (Version 1)
Quarter: 2017Q3

REPORT INFORMATION
  Report Type: Spontaneous
  Country: IE (occurrence: IE)
  Receive Date: 20170707
  Receipt Date: 20170707
  Transmission Date: 20171127
  Serious: Yes (Other)
  Sender: FDA-Public Use
  Company Number: PHHY2017IE093895

PATIENT
  Age: 65 Year
  Sex: Female

DRUGS (1)
  1. ACIC [Suspect]
     Active Substance: ACYCLOVIR
     Indication: ORAL HERPES
     Dosage: 5 %, UNK
     Route: 061
     Dates: start: 20170406

REACTIONS (2)
  - Wheezing [Unknown]
  - Lip swelling [Unknown]

NARRATIVE: CASE EVENT DATE: 20170406
